FAERS Safety Report 15261409 (Version 3)
Quarter: 2018Q4

REPORT INFORMATION
  Report Type: Report from Study
  Country: IT (occurrence: IT)
  Receive Date: 20180809
  Receipt Date: 20181001
  Transmission Date: 20190204
  Serious: Yes (Hospitalization)
  Sender: FDA-Public Use
  Company Number: IT-GLAXOSMITHKLINE-IT2018138615

PATIENT
  Age: 71 Year
  Sex: Female

DRUGS (5)
  1. ROPINIROLE HYDROCHLORIDE. [Suspect]
     Active Substance: ROPINIROLE HYDROCHLORIDE
     Indication: PARKINSONISM
     Dosage: 2 MG, QD
     Route: 048
     Dates: start: 20100423
  2. ROPINIROLE HYDROCHLORIDE. [Suspect]
     Active Substance: ROPINIROLE HYDROCHLORIDE
     Dosage: 4 MG, QD
     Route: 048
     Dates: start: 20100423
  3. ROPINIROLE HYDROCHLORIDE. [Suspect]
     Active Substance: ROPINIROLE HYDROCHLORIDE
     Dosage: 8 MG, QD
     Route: 048
     Dates: start: 20100423
  4. STALEVO [Suspect]
     Active Substance: CARBIDOPA\ENTACAPONE\LEVODOPA
     Indication: PARKINSONISM
     Dosage: 3 DF, QD
     Route: 048
     Dates: start: 20141101, end: 20180919
  5. STALEVO [Suspect]
     Active Substance: CARBIDOPA\ENTACAPONE\LEVODOPA
     Dosage: 1 DF, QD
     Route: 048
     Dates: start: 20141101, end: 20180919

REACTIONS (5)
  - Orthostatic hypotension [Recovering/Resolving]
  - Fracture [Recovering/Resolving]
  - Somnolence [Recovering/Resolving]
  - Fall [Recovering/Resolving]
  - Dreamy state [Recovering/Resolving]

NARRATIVE: CASE EVENT DATE: 20161001
